FAERS Safety Report 6986545-9 (Version None)
Quarter: 2010Q3

REPORT INFORMATION
  Report Type: 
  Country: None (occurrence: None)
  Receive Date: 20100915
  Receipt Date: 20090707
  Transmission Date: 20110219
  Serious: No
  Sender: FDA-Public Use
  Company Number: US-WYE-H10073109

PATIENT
  Sex: Female

DRUGS (15)
  1. PRISTIQ [Suspect]
  2. MORPHINE [Concomitant]
  3. CALCIUM [Concomitant]
  4. CALCITRIOL [Concomitant]
  5. MAGNESIUM OXIDE [Concomitant]
  6. SYNTHROID [Concomitant]
  7. SIMVASTATIN [Concomitant]
  8. ACETYLSALICYLIC ACID [Concomitant]
  9. LOVAZA [Concomitant]
  10. BENICAR [Concomitant]
  11. CONJUGATED ESTROGENS [Concomitant]
  12. ACIPHEX [Concomitant]
  13. REMERON [Concomitant]
  14. LUNESTA [Concomitant]
  15. MORPHINE [Concomitant]

REACTIONS (5)
  - BACK PAIN [None]
  - CHILLS [None]
  - CONDITION AGGRAVATED [None]
  - HYPERHIDROSIS [None]
  - MUSCLE SPASMS [None]
